FAERS Safety Report 6415682-2 (Version None)
Quarter: 2009Q4

REPORT INFORMATION
  Report Type: 
  Country: None (occurrence: None)
  Receive Date: 20091027
  Receipt Date: 20091020
  Transmission Date: 20100525
  Serious: Yes (Death)
  Sender: FDA-Public Use
  Company Number: JAUK19599

PATIENT
  Sex: Male

DRUGS (5)
  1. RISPERIDONE [Suspect]
     Indication: SCHIZOID PERSONALITY DISORDER
     Route: 048
     Dates: start: 19940511, end: 19940516
  2. SULPIRIDE [Suspect]
     Indication: PSYCHOTIC DISORDER
     Route: 048
     Dates: start: 19920406, end: 19920509
  3. LOFEPRAMINE [Concomitant]
     Indication: DEPRESSION
     Route: 048
  4. CARBAMAZEPINE [Concomitant]
     Indication: DEPRESSION
     Route: 048
  5. PINDOLOL [Concomitant]
     Indication: ABNORMAL BEHAVIOUR
     Route: 048

REACTIONS (3)
  - BRONCHOPNEUMONIA [None]
  - NEUROLEPTIC MALIGNANT SYNDROME [None]
  - URINARY INCONTINENCE [None]
